FAERS Safety Report 4584497-2 (Version None)
Quarter: 2005Q1

REPORT INFORMATION
  Report Type: 
  Country: None (occurrence: None)
  Receive Date: 20050125
  Receipt Date: 20041008
  Transmission Date: 20050727
  Serious: No
  Sender: FDA-Public Use
  Company Number: USA040979022

PATIENT
  Age: 73 Year
  Sex: Female
  Weight: 64 kg

DRUGS (2)
  1. FORTEO [Suspect]
     Indication: OSTEOPOROSIS
     Dosage: 20 UG/1 DAY
     Dates: start: 20040902
  2. CALCIUM AND VITAMIN D [Concomitant]

REACTIONS (9)
  - BONE PAIN [None]
  - COUGH [None]
  - DRY MOUTH [None]
  - FEELING ABNORMAL [None]
  - INJECTION SITE ERYTHEMA [None]
  - KERATOCONJUNCTIVITIS SICCA [None]
  - LYMPHADENOPATHY [None]
  - SNEEZING [None]
  - SWELLING [None]
